FAERS Safety Report 6854028-2 (Version None)
Quarter: 2010Q3

REPORT INFORMATION
  Report Type: 
  Country: None (occurrence: None)
  Receive Date: 20100717
  Receipt Date: 20071221
  Transmission Date: 20110219
  Serious: No
  Sender: FDA-Public Use
  Company Number: US-PFIZER INC-2007108785

PATIENT
  Sex: Female
  Weight: 89.09 kg

DRUGS (37)
  1. CHANTIX [Suspect]
     Indication: SMOKING CESSATION THERAPY
     Dates: start: 20071212
  2. MECLIZINE [Concomitant]
  3. HYTRIN [Concomitant]
  4. HYTRIN [Concomitant]
  5. ESTRADIOL [Concomitant]
  6. ESTRADIOL [Concomitant]
  7. LABETALOL HCL [Concomitant]
  8. LABETALOL HCL [Concomitant]
  9. NORVASC [Concomitant]
  10. NORVASC [Concomitant]
  11. GLIPIZIDE [Concomitant]
  12. GLIPIZIDE [Concomitant]
  13. DIOVAN HCT [Concomitant]
     Dosage: 160/12.5MG
  14. DIOVAN HCT [Concomitant]
  15. LIPITOR [Concomitant]
  16. LIPITOR [Concomitant]
  17. EFFEXOR [Concomitant]
  18. EFFEXOR [Concomitant]
  19. GEMFIBROZIL [Concomitant]
  20. GEMFIBROZIL [Concomitant]
  21. ACETYLSALICYLIC ACID [Concomitant]
  22. ACETYLSALICYLIC ACID [Concomitant]
  23. GLIMEPIRIDE [Concomitant]
  24. GLIMEPIRIDE [Concomitant]
  25. METFORMIN HCL [Concomitant]
  26. METFORMIN HCL [Concomitant]
  27. IMITREX [Concomitant]
  28. IMITREX [Concomitant]
  29. MIDRIN [Concomitant]
  30. MIDRIN [Concomitant]
  31. DIPHENHYDRAMINE [Concomitant]
  32. DIPHENHYDRAMINE [Concomitant]
  33. IBUPROFEN [Concomitant]
  34. IBUPROFEN [Concomitant]
  35. PANADEINE CO [Concomitant]
  36. PANADEINE CO [Concomitant]
  37. CLONAZEPAM [Concomitant]

REACTIONS (2)
  - ABDOMINAL PAIN UPPER [None]
  - VOMITING [None]
